FAERS Safety Report 14964275 (Version 2)
Quarter: 2019Q2

REPORT INFORMATION
  Report Type: Spontaneous
  Country: US (occurrence: US)
  Receive Date: 20180601
  Receipt Date: 20190606
  Transmission Date: 20190711
  Serious: No
  Sender: FDA-Public Use
  Company Number: US-BIOGEN-2018BI00579285

PATIENT
  Sex: Female

DRUGS (2)
  1. TECFIDERA [Suspect]
     Active Substance: DIMETHYL FUMARATE
     Indication: MULTIPLE SCLEROSIS
     Route: 050
  2. TECFIDERA [Suspect]
     Active Substance: DIMETHYL FUMARATE
     Route: 050

REACTIONS (3)
  - Constipation [Recovered/Resolved]
  - Flushing [Unknown]
  - Alopecia [Unknown]
